FAERS Safety Report 6120283-X (Version None)
Quarter: 2009Q1

REPORT INFORMATION
  Report Type: 
  Country: None (occurrence: None)
  Receive Date: 20090312
  Receipt Date: 20090304
  Transmission Date: 20090719
  Serious: Yes (Other)
  Sender: FDA-Public Use
  Company Number: CERZ-1000546

PATIENT
  Age: 28 Year
  Sex: Female

DRUGS (1)
  1. CEREZYME [Suspect]
     Indication: GAUCHER'S DISEASE
     Dosage: 40 U/KG, NTRAVENOUS
     Route: 042
     Dates: start: 20040131

REACTIONS (13)
  - CHEST PAIN [None]
  - COUGH [None]
  - DYSPNOEA [None]
  - EAR DISCOMFORT [None]
  - EYELID OEDEMA [None]
  - LOCALISED OEDEMA [None]
  - NASAL OEDEMA [None]
  - OEDEMA MOUTH [None]
  - OEDEMA PERIPHERAL [None]
  - PARAESTHESIA ORAL [None]
  - RASH [None]
  - RASH GENERALISED [None]
  - URTICARIA [None]
